FAERS Safety Report 20814315 (Version 1)
Quarter: 2022Q2

REPORT INFORMATION
  Report Type: Report from Study
  Country: US (occurrence: US)
  Receive Date: 20220511
  Receipt Date: 20220511
  Transmission Date: 20220721
  Serious: Yes (Other)
  Sender: FDA-Public Use
  Company Number: US-KOREA IPSEN Pharma-2022-13066

PATIENT
  Sex: Female

DRUGS (1)
  1. SOMATULINE DEPOT [Suspect]
     Active Substance: LANREOTIDE ACETATE
     Indication: Carcinoid syndrome
     Dosage: 120MG/0.5 ML EVERY 4 WEEKS
     Route: 058
     Dates: start: 201911

REACTIONS (3)
  - Thyroid mass [Recovered/Resolved]
  - Blood glucose increased [Recovering/Resolving]
  - Fatigue [Recovering/Resolving]
